FAERS Safety Report 14584151 (Version 2)
Quarter: 2018Q1

REPORT INFORMATION
  Report Type: Report from Study
  Country: US (occurrence: AR)
  Receive Date: 20180228
  Receipt Date: 20180313
  Transmission Date: 20180509
  Serious: Yes (Hospitalization, Other)
  Sender: FDA-Public Use
  Company Number: US-SUNOVION-2018SUN000704

PATIENT
  Age: 62 Year
  Sex: Male
  Weight: 60 kg

DRUGS (1)
  1. INDACATEROL AND GLYCOPYRROLATE [Suspect]
     Active Substance: GLYCOPYRROLATE\INDACATEROL MALEATE
     Indication: CHRONIC OBSTRUCTIVE PULMONARY DISEASE
     Dosage: UNKNOWN QD (LAST YEAR)
     Route: 065
     Dates: end: 201710

REACTIONS (4)
  - Pneumonia [Recovering/Resolving]
  - Pulmonary mass [Unknown]
  - Myocardial infarction [Unknown]
  - Cough [Unknown]

NARRATIVE: CASE EVENT DATE: 201710
